FAERS Safety Report 14990892 (Version 2)
Quarter: 2018Q2

REPORT INFORMATION
  Report Type: Report from Study
  Country: IT (occurrence: IT)
  Receive Date: 20180608
  Receipt Date: 20180608
  Transmission Date: 20180711
  Serious: Yes (Life-Threatening, Other)
  Sender: FDA-Public Use
  Company Number: IT-BRISTOL-MYERS SQUIBB COMPANY-BMS-2018-049966

PATIENT
  Age: 64 Year
  Sex: Female

DRUGS (3)
  1. BLINDED NIVOLUMAB [Suspect]
     Active Substance: NIVOLUMAB
     Indication: MALIGNANT MELANOMA STAGE III
     Dosage: 3 MG/KG, UNK
     Route: 065
  2. BLINDED PLACEBO [Suspect]
     Active Substance: INVESTIGATIONAL PRODUCT
     Indication: MALIGNANT MELANOMA STAGE III
     Dosage: 3 MG/KG, UNK
     Route: 065
  3. BLINDED IPILIMUMAB [Suspect]
     Active Substance: IPILIMUMAB
     Indication: MALIGNANT MELANOMA STAGE III
     Dosage: 3 MG/KG, UNK
     Route: 065

REACTIONS (3)
  - Acute interstitial pneumonitis [Recovered/Resolved]
  - Colitis [Recovered/Resolved]
  - Diffuse alveolar damage [Recovered/Resolved]
